FAERS Safety Report 15814471 (Version 2)
Quarter: 2019Q1

REPORT INFORMATION
  Report Type: Spontaneous
  Country: FR (occurrence: FR)
  Receive Date: 20190111
  Receipt Date: 20190208
  Transmission Date: 20190417
  Serious: Yes (Death, Hospitalization)
  Sender: FDA-Public Use
  Company Number: FR-009507513-1812FRA011153

PATIENT
  Age: 88 Year
  Sex: Male
  Weight: 63 kg

DRUGS (6)
  1. FIDAXOMICIN [Suspect]
     Active Substance: FIDAXOMICIN
     Dosage: 1 DF, TWICE DAILY (ONE TABLET IN THE MORNING AND IN THE EVENING DURING 10 DAYS)
     Route: 050
     Dates: start: 20181028, end: 20181106
  2. IMODIUM [Concomitant]
     Active Substance: LOPERAMIDE HYDROCHLORIDE
     Indication: DIARRHOEA
     Dosage: UNK UNK, UNKNOWN
     Route: 065
  3. TAZOCILLINE [Concomitant]
     Active Substance: PIPERACILLIN SODIUM\TAZOBACTAM SODIUM
     Indication: RESPIRATORY TRACT INFECTION
     Dosage: UNK UNK, UNKNOWN FREQ.
     Route: 065
  4. SMECTA [Concomitant]
     Active Substance: MONTMORILLONITE
     Indication: DIARRHOEA
     Dosage: UNK UNK, UNKNOWN
     Route: 065
  5. ROCEPHIN [Concomitant]
     Active Substance: CEFTRIAXONE SODIUM
     Indication: URINARY TRACT INFECTION
     Dosage: UNK UNK, UNKNOWN FREQ.
     Route: 065
     Dates: start: 201807
  6. FIDAXOMICIN [Suspect]
     Active Substance: FIDAXOMICIN
     Indication: CLOSTRIDIUM DIFFICILE INFECTION
     Dosage: 1 DF, TWICE DAILY (ONE TABLET IN THE MORNING AND IN THE EVENING DURING 10 DAYS)
     Route: 050
     Dates: start: 20180802, end: 20180812

REACTIONS (7)
  - Drug ineffective [Unknown]
  - Bedridden [Fatal]
  - Diarrhoea [Not Recovered/Not Resolved]
  - Inflammation [Unknown]
  - Wrong technique in product usage process [Unknown]
  - Clostridium difficile infection [Unknown]
  - Parkinson^s disease [Fatal]

NARRATIVE: CASE EVENT DATE: 201811
